FAERS Safety Report 17099713 (Version 2)
Quarter: 2019Q4

REPORT INFORMATION
  Report Type: Report from Study
  Country: DE (occurrence: DE)
  Receive Date: 20191202
  Receipt Date: 20191210
  Transmission Date: 20200122
  Serious: Yes (Other)
  Sender: FDA-Public Use
  Company Number: DE-MYLANLABS-2019M1115764

PATIENT
  Age: 57 Year
  Sex: Female

DRUGS (5)
  1. PREDNISOLON                        /00016201/ [Suspect]
     Active Substance: PREDNISOLONE
     Indication: PRODUCT USED FOR UNKNOWN INDICATION
     Dosage: 2.5 MG, ALTERNATE DAY (2.5-5MG, ALTERNATELY)
     Route: 065
     Dates: start: 20190402
  2. PREDNISOLON                        /00016201/ [Suspect]
     Active Substance: PREDNISOLONE
     Dosage: 1 DOSAGE(2.5 MG ALTERNATING WITH 5 MG)
     Route: 065
     Dates: start: 20190402
  3. PREDNISOLON                        /00016201/ [Suspect]
     Active Substance: PREDNISOLONE
     Dosage: 5 MG, ALTERNATE DAY (2.5-5MG, ALTERNATELY)
     Route: 065
     Dates: start: 20190402
  4. METHOTREXATE. [Suspect]
     Active Substance: METHOTREXATE
     Indication: PRODUCT USED FOR UNKNOWN INDICATION
     Dosage: 15 MG, WEEKLY
     Route: 065
     Dates: start: 20181124, end: 20190528
  5. XELJANZ [Suspect]
     Active Substance: TOFACITINIB CITRATE
     Indication: RHEUMATOID ARTHRITIS
     Dosage: 5 MG, 2X/DAY
     Route: 065
     Dates: start: 20180726, end: 20190528

REACTIONS (2)
  - Liver function test abnormal [Recovered/Resolved]
  - Hepatitis E [Recovered/Resolved]

NARRATIVE: CASE EVENT DATE: 201905
